FAERS Safety Report 4712765-X (Version None)
Quarter: 2005Q3

REPORT INFORMATION
  Report Type: 
  Country: None (occurrence: None)
  Receive Date: 20050701
  Receipt Date: 20050113
  Transmission Date: 20060218
  Serious: Yes (Other)
  Sender: FDA-Public Use
  Company Number: 2005014842

PATIENT
  Age: 14 Year
  Sex: Female

DRUGS (1)
  1. ZOLOFT [Suspect]
     Indication: DEPRESSION
     Dosage: UNK (50 MG), UNKNOWN
     Route: 065

REACTIONS (2)
  - OVERDOSE [None]
  - SUICIDE ATTEMPT [None]
